FAERS Safety Report 11839762 (Version 1)
Quarter: 2015Q4

REPORT INFORMATION
  Report Type: Spontaneous
  Country: US (occurrence: None)
  Receive Date: 20151215
  Receipt Date: 20151215
  Transmission Date: 20160305
  Serious: Yes (Life-Threatening, Hospitalization, Disabling, Other)
  Sender: FDA-Public Use
  Company Number: None

PATIENT
  Age: 63 Year
  Sex: Male
  Weight: 123.38 kg

DRUGS (1)
  1. BRILINTA [Suspect]
     Active Substance: TICAGRELOR
     Indication: CORONARY ARTERIAL STENT INSERTION
     Dosage: TAKEN BY MOUTH
     Dates: start: 20150315, end: 20150323

REACTIONS (3)
  - Cerebrovascular accident [None]
  - Cerebral haemorrhage [None]
  - Coronary arterial stent insertion [None]

NARRATIVE: CASE EVENT DATE: 20150318
